FAERS Safety Report 24809722 (Version 1)
Quarter: 2025Q1

REPORT INFORMATION
  Report Type: Spontaneous
  Country: US (occurrence: US)
  Receive Date: 20250106
  Receipt Date: 20250106
  Transmission Date: 20250409
  Serious: No
  Sender: VISTAPHARM
  Company Number: US-Vista Pharmaceuticals Inc.-2168464

PATIENT
  Age: 73 Year
  Sex: Male

DRUGS (1)
  1. SULFAMETHOXAZOLE\TRIMETHOPRIM [Suspect]
     Active Substance: SULFAMETHOXAZOLE\TRIMETHOPRIM
     Indication: Skin lesion

REACTIONS (1)
  - Drug ineffective for unapproved indication [Unknown]
